FAERS Safety Report 12890287 (Version 1)
Quarter: 2016Q4

REPORT INFORMATION
  Report Type: Spontaneous
  Country: US (occurrence: US)
  Receive Date: 20161027
  Receipt Date: 20161027
  Transmission Date: 20170207
  Serious: No
  Sender: FDA-Public Use
  Company Number: US-MYLANLABS-2016M1029019

PATIENT
  Sex: Female
  Weight: 67.57 kg

DRUGS (4)
  1. CARBIDOPA AND LEVODOPA [Suspect]
     Active Substance: CARBIDOPA\LEVODOPA
     Dosage: 25 MG / 100 MG, Q3H
     Route: 048
     Dates: start: 2016
  2. CARBIDOPA AND LEVODOPA [Suspect]
     Active Substance: CARBIDOPA\LEVODOPA
     Dosage: 56.25/225 MG, 7XDAILY
     Route: 048
  3. CARBIDOPA AND LEVODOPA [Suspect]
     Active Substance: CARBIDOPA\LEVODOPA
     Indication: PARKINSON^S DISEASE
     Dosage: 56.25 MG / 225 MG, Q3H
     Route: 048
     Dates: end: 2016
  4. PROZAC [Concomitant]
     Active Substance: FLUOXETINE HYDROCHLORIDE
     Dosage: 40 MG, UNK

REACTIONS (6)
  - Anxiety [Recovering/Resolving]
  - Tinnitus [Recovered/Resolved]
  - Hallucination, auditory [Recovered/Resolved]
  - Restless legs syndrome [Recovering/Resolving]
  - Depression [Recovering/Resolving]
  - Prescribed overdose [Recovering/Resolving]

NARRATIVE: CASE EVENT DATE: 2013
